FAERS Safety Report 20622633 (Version 3)
Quarter: 2023Q2

REPORT INFORMATION
  Report Type: Report from Study
  Country: US (occurrence: US)
  Receive Date: 20220322
  Receipt Date: 20230410
  Transmission Date: 20230722
  Serious: No
  Sender: FDA-Public Use
  Company Number: US-NOVARTISTESTPH-NVSC2022US063993

PATIENT
  Sex: Female

DRUGS (2)
  1. COSENTYX [Suspect]
     Active Substance: SECUKINUMAB
     Indication: Psoriasis
     Dosage: 75 MG (WEEKLY FOR 5 WEEKS)
     Route: 058
     Dates: start: 202109
  2. COSENTYX [Suspect]
     Active Substance: SECUKINUMAB
     Dosage: 75 MG, QMO (ONCE EVERY 4 WEEKS)
     Route: 058

REACTIONS (1)
  - Scoliosis [Unknown]
